FAERS Safety Report 23369382 (Version 1)
Quarter: 2024Q1

REPORT INFORMATION
  Report Type: Spontaneous
  Country: DE (occurrence: DE)
  Receive Date: 20240105
  Receipt Date: 20240105
  Transmission Date: 20240410
  Serious: Yes (Hospitalization, Other)
  Sender: FDA-Public Use
  Company Number: None

PATIENT
  Age: 32 Year
  Sex: Male
  Weight: 116.5 kg

DRUGS (18)
  1. DOXEPIN [Suspect]
     Active Substance: DOXEPIN
     Dosage: 100 MG, QD
     Route: 065
     Dates: start: 20160803, end: 20160829
  2. DOXEPIN [Suspect]
     Active Substance: DOXEPIN
     Indication: Antidepressant therapy
     Dosage: 300 MG
     Route: 065
     Dates: start: 2014, end: 20160829
  3. DOXEPIN [Suspect]
     Active Substance: DOXEPIN
     Indication: Antidepressant therapy
     Dosage: 40 MG, UNK (PER DAY)
     Route: 065
  4. DOXEPIN [Suspect]
     Active Substance: DOXEPIN
     Dosage: 52.5 MG/DL
     Route: 065
     Dates: start: 2017
  5. DOXEPIN [Suspect]
     Active Substance: DOXEPIN
     Dosage: UNK (DOSE BETWEEN 25-100 MG PER DAY)
     Route: 048
     Dates: start: 20160725, end: 20160802
  6. LITHIUM CARBONATE [Suspect]
     Active Substance: LITHIUM CARBONATE
     Dosage: 1125 MG, QD
     Route: 065
     Dates: start: 201601, end: 201608
  7. LITHIUM CARBONATE [Suspect]
     Active Substance: LITHIUM CARBONATE
     Indication: Gastrointestinal disorder
     Dosage: 900 MG, QD
     Route: 065
     Dates: start: 201706, end: 20171123
  8. LITHIUM CARBONATE [Suspect]
     Active Substance: LITHIUM CARBONATE
     Indication: Gastrointestinal disorder
     Dosage: UNK (DOSE BETWEEN 50-0 MG PER DAY)
     Route: 048
     Dates: start: 20160830, end: 20160831
  9. PREGABALIN [Suspect]
     Active Substance: PREGABALIN
     Dosage: 175 MG, UNK (DAILY)
     Route: 048
     Dates: start: 20160731, end: 20160828
  10. PREGABALIN [Suspect]
     Active Substance: PREGABALIN
     Indication: Product used for unknown indication
     Dosage: 300 MG, UNK (DAILY)
     Route: 065
     Dates: start: 2014, end: 20160829
  11. PREGABALIN [Suspect]
     Active Substance: PREGABALIN
     Dosage: 900 MG (DAILY)
     Route: 048
     Dates: start: 20160731, end: 20160828
  12. TIZANIDINE [Suspect]
     Active Substance: TIZANIDINE
     Dosage: UNK (DOSE TAPER FROM 12 TO 5 MG)
     Route: 048
     Dates: start: 2016, end: 20160829
  13. TIZANIDINE [Suspect]
     Active Substance: TIZANIDINE
     Indication: Product used for unknown indication
     Dosage: UNK (DOSE TAPER FROM 5 MG TO 0)
     Route: 048
     Dates: start: 20160830, end: 20160906
  14. TIZANIDINE [Suspect]
     Active Substance: TIZANIDINE
     Indication: Muscle relaxant therapy
     Dosage: 12 MG, QD
     Route: 048
     Dates: start: 201605
  15. VENLAFAXINE [Suspect]
     Active Substance: VENLAFAXINE HYDROCHLORIDE
     Indication: Product used for unknown indication
     Dosage: UNK
     Route: 065
     Dates: start: 201706
  16. BUPROPION [Concomitant]
     Active Substance: BUPROPION
     Indication: Gastrointestinal disorder
     Dosage: UNK
     Route: 065
  17. OMEPRAZOLE [Concomitant]
     Active Substance: OMEPRAZOLE
     Dosage: 1125 MG, UNK (DAILY)
     Route: 065
     Dates: start: 201511, end: 20160730
  18. OMEPRAZOLE [Concomitant]
     Active Substance: OMEPRAZOLE
     Indication: Product used for unknown indication
     Dosage: 20 MG, UNK (PER DAY)
     Route: 065
     Dates: start: 20171110, end: 20171121

REACTIONS (17)
  - Psychotic disorder [Unknown]
  - Oedema [Recovered/Resolved]
  - Weight increased [Unknown]
  - Albuminuria [Recovered/Resolved]
  - Oedema [Recovered/Resolved]
  - Protein S decreased [Recovered/Resolved]
  - Nephrotic syndrome [Recovered/Resolved]
  - Hypoalbuminaemia [Recovered/Resolved]
  - Pleural effusion [Unknown]
  - Proteinuria [Recovered/Resolved]
  - Nephrotic syndrome [Recovered/Resolved]
  - Disease recurrence [Recovered/Resolved]
  - Haematuria [Recovered/Resolved]
  - Kidney enlargement [Unknown]
  - Dyspnoea [Recovered/Resolved]
  - Pain [Unknown]
  - Persistent depressive disorder [Unknown]

NARRATIVE: CASE EVENT DATE: 20160101
